FAERS Safety Report 16309250 (Version 2)
Quarter: 2019Q2

REPORT INFORMATION
  Report Type: Spontaneous
  Country: None (occurrence: US)
  Receive Date: 20190514
  Receipt Date: 20190514
  Transmission Date: 20190711
  Serious: No
  Sender: FDA-Public Use
  Company Number: US-ALLERGAN-1859005US

PATIENT
  Age: 62 Year
  Sex: Female

DRUGS (5)
  1. CITRACAL [Concomitant]
     Active Substance: CALCIUM CITRATE
  2. VITAMIN D [Concomitant]
     Active Substance: VITAMIN D NOS
  3. RISEDRONATE SODIUM - BP [Suspect]
     Active Substance: RISEDRONATE SODIUM
     Indication: PRODUCT USED FOR UNKNOWN INDICATION
     Dosage: UNK
     Route: 065
     Dates: start: 20140911, end: 201803
  4. MULTIVITAMINS [Concomitant]
     Active Substance: VITAMINS
  5. CALCIUM [Concomitant]
     Active Substance: CALCIUM

REACTIONS (3)
  - Carpal tunnel syndrome [Unknown]
  - Reflux gastritis [Unknown]
  - Hypoaesthesia [Unknown]

NARRATIVE: CASE EVENT DATE: 201502
